FAERS Safety Report 12587313 (Version 1)
Quarter: 2016Q3

REPORT INFORMATION
  Report Type: Spontaneous
  Country: US (occurrence: US)
  Receive Date: 20160725
  Receipt Date: 20160725
  Transmission Date: 20161109
  Serious: No
  Sender: FDA-Public Use
  Company Number: US-B.I. PHARMACEUTICALS,INC./RIDGEFIELD-2016-BI-45792BP

PATIENT
  Age: 65 Year
  Sex: Female

DRUGS (7)
  1. ELIQUIS [Concomitant]
     Active Substance: APIXABAN
     Indication: ATRIAL FIBRILLATION
     Route: 048
     Dates: start: 2015
  2. EPIPEN [Concomitant]
     Active Substance: EPINEPHRINE
     Indication: GALACTOSE INTOLERANCE
     Route: 058
     Dates: start: 2015
  3. ZANTAC [Suspect]
     Active Substance: RANITIDINE HYDROCHLORIDE
     Dosage: 300 MG
     Route: 048
     Dates: start: 2015, end: 2015
  4. BENADRYL [Concomitant]
     Active Substance: DIPHENHYDRAMINE HYDROCHLORIDE
     Indication: GALACTOSE INTOLERANCE
     Dosage: 25 MG
     Route: 048
  5. ZANTAC [Suspect]
     Active Substance: RANITIDINE HYDROCHLORIDE
     Indication: GALACTOSE INTOLERANCE
     Dosage: 300 MG
     Route: 048
     Dates: start: 20160705
  6. SYNTHROID [Concomitant]
     Active Substance: LEVOTHYROXINE SODIUM
     Indication: HYPOTHYROIDISM
     Dosage: 100 MCG
     Route: 048
     Dates: start: 2006
  7. ZYRTEC [Concomitant]
     Active Substance: CETIRIZINE HYDROCHLORIDE
     Indication: GALACTOSE INTOLERANCE
     Dosage: 10 MG
     Route: 048
     Dates: start: 2015

REACTIONS (2)
  - Off label use [Unknown]
  - Galactose intolerance [Not Recovered/Not Resolved]

NARRATIVE: CASE EVENT DATE: 2015
